FAERS Safety Report 13865892 (Version 1)
Quarter: 2017Q3

REPORT INFORMATION
  Report Type: Spontaneous
  Country: US (occurrence: US)
  Receive Date: 20170814
  Receipt Date: 20170814
  Transmission Date: 20171127
  Serious: No
  Sender: FDA-Public Use
  Company Number: US-ROCHE-1327792

PATIENT
  Sex: Male

DRUGS (1)
  1. TAMIFLU [Suspect]
     Active Substance: OSELTAMIVIR PHOSPHATE
     Indication: PROPHYLAXIS
     Dosage: TWICE A DAY FOR 5 DAYS
     Route: 048
     Dates: start: 20131227, end: 20131229

REACTIONS (4)
  - Tremor [Recovered/Resolved]
  - Dysuria [Recovered/Resolved]
  - Abdominal pain upper [Unknown]
  - Product taste abnormal [Unknown]
